FAERS Safety Report 13362348 (Version 1)
Quarter: 2017Q1

REPORT INFORMATION
  Report Type: Spontaneous
  Country: US (occurrence: US)
  Receive Date: 20170323
  Receipt Date: 20170323
  Transmission Date: 20170429
  Serious: Yes (Hospitalization)
  Sender: FDA-Public Use
  Company Number: US-MALLINCKRODT-T201700995

PATIENT
  Age: 10 Month
  Sex: Male

DRUGS (1)
  1. H.P. ACTHAR [Suspect]
     Active Substance: CORTICOTROPIN
     Indication: EPILEPSY
     Dosage: 5.6 UNITS DAILY
     Route: 030
     Dates: start: 20161107

REACTIONS (1)
  - Epilepsy [Unknown]

NARRATIVE: CASE EVENT DATE: 20170309
